FAERS Safety Report 5717242-5 (Version None)
Quarter: 2008Q2

REPORT INFORMATION
  Report Type: 
  Country: None (occurrence: None)
  Receive Date: 20080424
  Receipt Date: 20080416
  Transmission Date: 20081010
  Serious: Yes (Hospitalization)
  Sender: FDA-Public Use
  Company Number: JP-PFIZER INC-2008033949

PATIENT
  Age: 89 Year
  Sex: Female

DRUGS (4)
  1. DETROL LA [Suspect]
     Dosage: DAILY DOSE:4MG
     Route: 048
  2. BLADDERON [Concomitant]
     Route: 048
  3. BUP-4 [Concomitant]
     Route: 048
  4. ALL OTHER THERAPEUTIC PRODUCTS [Concomitant]
     Route: 048

REACTIONS (1)
  - INTESTINAL OBSTRUCTION [None]
